FAERS Safety Report 16679210 (Version 1)
Quarter: 2019Q3

REPORT INFORMATION
  Report Type: Spontaneous
  Country: FR (occurrence: FR)
  Receive Date: 20190807
  Receipt Date: 20190807
  Transmission Date: 20191004
  Serious: Yes (Hospitalization, Other)
  Sender: FDA-Public Use
  Company Number: FR-GLAXOSMITHKLINE-FR2019141852

PATIENT
  Age: 67 Year
  Sex: Male
  Weight: 87 kg

DRUGS (2)
  1. CEFUROXIME SODIUM. [Suspect]
     Active Substance: CEFUROXIME SODIUM
     Indication: ANTIBIOTIC THERAPY
     Dosage: IN TOTAL
     Route: 042
     Dates: start: 20190711, end: 20190711
  2. TRANEXAMIC ACID. [Suspect]
     Active Substance: TRANEXAMIC ACID
     Indication: INTRAOPERATIVE CARE
     Dosage: IN TOTAL
     Route: 042
     Dates: start: 20190711, end: 20190711

REACTIONS (2)
  - Product prescribing error [Recovered/Resolved]
  - Status epilepticus [Recovered/Resolved]

NARRATIVE: CASE EVENT DATE: 20190711
